FAERS Safety Report 15562329 (Version 1)
Quarter: 2018Q4

REPORT INFORMATION
  Report Type: Report from Study
  Country: JP (occurrence: JP)
  Receive Date: 20181029
  Receipt Date: 20181029
  Transmission Date: 20190205
  Serious: Yes (Death)
  Sender: FDA-Public Use
  Company Number: JP-ASTRAZENECA-2018SF41699

PATIENT
  Age: 85 Year
  Sex: Female

DRUGS (8)
  1. MICARDIS [Concomitant]
     Active Substance: TELMISARTAN
     Route: 048
  2. KETAS [Concomitant]
     Active Substance: IBUDILAST
  3. ADALAT [Concomitant]
     Active Substance: NIFEDIPINE
  4. ZETIA [Concomitant]
     Active Substance: EZETIMIBE
  5. PAXIL [Concomitant]
     Active Substance: PAROXETINE HYDROCHLORIDE
  6. GASTER [Concomitant]
     Active Substance: FAMOTIDINE
  7. SAXAGLIPTIN [Suspect]
     Active Substance: SAXAGLIPTIN
     Indication: TYPE 2 DIABETES MELLITUS
     Route: 048
     Dates: start: 20140225, end: 20160803
  8. GLUCOBAY [Concomitant]
     Active Substance: ACARBOSE
     Dates: end: 20160413

REACTIONS (2)
  - Stress cardiomyopathy [Fatal]
  - Pneumonia [Fatal]

NARRATIVE: CASE EVENT DATE: 20171001
